FAERS Safety Report 11055296 (Version 1)
Quarter: 2015Q2

REPORT INFORMATION
  Report Type: Spontaneous
  Country: US (occurrence: US)
  Receive Date: 20150422
  Receipt Date: 20150422
  Transmission Date: 20150821
  Serious: No
  Sender: FDA-Public Use
  Company Number: US-PFIZER INC-2015130520

PATIENT
  Sex: Male

DRUGS (1)
  1. NORVASC [Suspect]
     Active Substance: AMLODIPINE BESYLATE
     Indication: PAIN IN EXTREMITY
     Dosage: UNK

REACTIONS (3)
  - Therapeutic response unexpected [Unknown]
  - Analgesic therapy [Unknown]
  - Product use issue [Unknown]
